FAERS Safety Report 4559132-X (Version None)
Quarter: 2005Q1

REPORT INFORMATION
  Report Type: 
  Country: None (occurrence: None)
  Receive Date: 20050121
  Receipt Date: 20050121
  Transmission Date: 20050727
  Serious: No
  Sender: FDA-Public Use
  Company Number: None

PATIENT
  Age: 75 Year
  Sex: Male
  Weight: 77.1 kg

DRUGS (1)
  1. DICLOFENAC (DICLOFENAC SODIUM) TABLET (DELAYED RELEASE), 75 MG [Suspect]
     Indication: SCIATICA
     Dosage: 1 TABLET, PRN, ORAL
     Route: 048
     Dates: start: 20040326, end: 20040401

REACTIONS (1)
  - RASH PRURITIC [None]
